FAERS Safety Report 10086714 (Version 2)
Quarter: 2014Q2

REPORT INFORMATION
  Report Type: Report from Study
  Country: US (occurrence: US)
  Receive Date: 20140418
  Receipt Date: 20140423
  Transmission Date: 20141212
  Serious: Yes (Death)
  Sender: FDA-Public Use
  Company Number: US-BRISTOL-MYERS SQUIBB COMPANY-20617205

PATIENT
  Age: 67 Year
  Sex: Female

DRUGS (18)
  1. BLINDED: IPILIMUMAB [Suspect]
     Indication: SMALL CELL LUNG CANCER EXTENSIVE STAGE
     Route: 042
     Dates: start: 20140206, end: 20140313
  2. ETOPOSIDE [Suspect]
     Indication: SMALL CELL LUNG CANCER EXTENSIVE STAGE
     Route: 042
     Dates: start: 20131218, end: 20140228
  3. CARBOPLATIN [Suspect]
     Indication: SMALL CELL LUNG CANCER EXTENSIVE STAGE
     Route: 042
     Dates: start: 20131218, end: 20140225
  4. BLINDED: PLACEBO [Suspect]
     Indication: SMALL CELL LUNG CANCER EXTENSIVE STAGE
     Route: 042
     Dates: start: 20140206, end: 20140313
  5. PROTONIX [Concomitant]
     Dates: start: 20140210
  6. PERCOCET [Concomitant]
     Dates: start: 20140203
  7. PREDNISONE [Concomitant]
     Dates: start: 20140207
  8. NAPROXEN [Concomitant]
     Dates: start: 20140203
  9. FLEXALL PAIN RELIEVING [Concomitant]
     Dates: start: 20140203
  10. NEULASTA [Concomitant]
     Dates: start: 20140117
  11. ZOVIRAX [Concomitant]
     Dates: start: 20140101
  12. NICOTINE [Concomitant]
     Dosage: PATCH
     Dates: start: 20140102
  13. IMMODIUM [Concomitant]
     Dates: start: 20131231
  14. EMEND [Concomitant]
     Dates: start: 20131218
  15. DECADRON [Concomitant]
     Dates: start: 20131221
  16. ALOXI [Concomitant]
     Dates: start: 20131218
  17. ZOFRAN [Concomitant]
     Dates: start: 20131219
  18. VISTARIL [Concomitant]
     Dates: start: 20131126

REACTIONS (1)
  - Malignant neoplasm progression [Fatal]
